FAERS Safety Report 4676344-5 (Version None)
Quarter: 2005Q2

REPORT INFORMATION
  Report Type: 
  Country: None (occurrence: None)
  Receive Date: 20050527
  Receipt Date: 20050317
  Transmission Date: 20051028
  Serious: Yes (Other)
  Sender: FDA-Public Use
  Company Number: PHEH2005US03245

PATIENT
  Age: 59 Year
  Sex: Male

DRUGS (4)
  1. FLUOCINONIDE [Concomitant]
  2. XANAX [Concomitant]
     Indication: ANXIETY
     Dosage: 0.25 MG, UNK
  3. ELIDEL [Suspect]
     Indication: DERMATITIS
     Dosage: UNK, QD
     Route: 061
     Dates: start: 20020101, end: 20020101
  4. ELIDEL [Suspect]
     Route: 061
     Dates: start: 20020101, end: 20020101

REACTIONS (5)
  - ACNE [None]
  - MASS [None]
  - MASS EXCISION [None]
  - SQUAMOUS CELL CARCINOMA [None]
  - SURGERY [None]
